FAERS Safety Report 17834053 (Version 4)
Quarter: 2020Q3

REPORT INFORMATION
  Report Type: Spontaneous
  Country: ES (occurrence: ES)
  Receive Date: 20200528
  Receipt Date: 20200821
  Transmission Date: 20201103
  Serious: Yes (Hospitalization, Other)
  Sender: FDA-Public Use
  Company Number: ES-ALEXION-A201801696

PATIENT
  Sex: Female

DRUGS (2)
  1. SOLIRIS [Suspect]
     Active Substance: ECULIZUMAB
     Indication: C3 GLOMERULOPATHY
     Dosage: 1200 MG, Q2W
     Route: 065
     Dates: end: 202001
  2. SOLIRIS [Suspect]
     Active Substance: ECULIZUMAB
     Indication: OFF LABEL USE
     Dosage: 1200 MG, Q2W
     Route: 065
     Dates: start: 202005

REACTIONS (12)
  - Blood albumin increased [Unknown]
  - Renal impairment [Recovering/Resolving]
  - Off label use [Recovering/Resolving]
  - Hepatic mass [Unknown]
  - Dialysis [Recovering/Resolving]
  - Blood creatinine increased [Recovering/Resolving]
  - Pruritus [Unknown]
  - Proteinuria [Recovering/Resolving]
  - Monoclonal immunoglobulin present [Unknown]
  - Drug specific antibody [Unknown]
  - Pneumonia [Recovering/Resolving]
  - Blood immunoglobulin G increased [Unknown]

NARRATIVE: CASE EVENT DATE: 201912
